FAERS Safety Report 25206187 (Version 1)
Quarter: 2025Q2

REPORT INFORMATION
  Report Type: Spontaneous
  Country: JP (occurrence: JP)
  Receive Date: 20250417
  Receipt Date: 20250417
  Transmission Date: 20250717
  Serious: Yes (Disabling)
  Sender: EISAI
  Company Number: JP-Eisai-EC-2025-187433

PATIENT
  Age: 68 Year
  Sex: Female

DRUGS (8)
  1. LENVIMA [Suspect]
     Active Substance: LENVATINIB
     Indication: Endometrial cancer
     Dates: start: 20240903, end: 20240908
  2. LENVIMA [Suspect]
     Active Substance: LENVATINIB
     Dates: start: 20240909, end: 20250129
  3. KEYTRUDA [Suspect]
     Active Substance: PEMBROLIZUMAB
     Indication: Endometrial cancer
     Dates: start: 20240903, end: 20250121
  4. NIFEDIPINE [Concomitant]
     Active Substance: NIFEDIPINE
     Indication: Blood pressure increased
     Route: 048
     Dates: start: 20240905, end: 20240905
  5. AZILSARTAN KAMEDOXOMIL [Concomitant]
     Active Substance: AZILSARTAN KAMEDOXOMIL
     Indication: Blood pressure increased
     Dates: start: 20240908, end: 20240908
  6. AZILSARTAN KAMEDOXOMIL [Concomitant]
     Active Substance: AZILSARTAN KAMEDOXOMIL
     Dates: start: 20240909
  7. AMLODIPINE [Concomitant]
     Active Substance: AMLODIPINE BESYLATE
     Indication: Blood pressure increased
     Route: 048
     Dates: start: 20240906, end: 20240907
  8. HACHIAZULE [Concomitant]
     Indication: Product used for unknown indication

REACTIONS (2)
  - Immune-mediated hypothyroidism [Not Recovered/Not Resolved]
  - Blood pressure increased [Unknown]

NARRATIVE: CASE EVENT DATE: 20240905
